FAERS Safety Report 16643986 (Version 2)
Quarter: 2019Q3

REPORT INFORMATION
  Report Type: Spontaneous
  Country: US (occurrence: US)
  Receive Date: 20190729
  Receipt Date: 20190801
  Transmission Date: 20191004
  Serious: Yes (Other)
  Sender: FDA-Public Use
  Company Number: US-PFIZER INC-2019312164

PATIENT
  Age: 67 Year
  Sex: Female

DRUGS (1)
  1. BUPIVACAINE HCL [Suspect]
     Active Substance: BUPIVACAINE HYDROCHLORIDE
     Indication: LOCAL ANAESTHESIA
     Dosage: 0.2 ML, UNK
     Route: 023

REACTIONS (5)
  - Drug hypersensitivity [Unknown]
  - Throat tightness [Unknown]
  - Urticaria [Unknown]
  - Visual impairment [Unknown]
  - Malaise [Unknown]
